FAERS Safety Report 24178200 (Version 1)
Quarter: 2024Q3

REPORT INFORMATION
  Report Type: Report from Study
  Country: US (occurrence: US)
  Receive Date: 20240806
  Receipt Date: 20240806
  Transmission Date: 20241016
  Serious: Yes (Other)
  Sender: ROCHE
  Company Number: US-ROCHE-10000042070

PATIENT
  Age: 68 Year
  Sex: Female

DRUGS (3)
  1. COTELLIC [Suspect]
     Active Substance: COBIMETINIB
     Indication: Pancreatic carcinoma
     Route: 048
  2. COTELLIC [Suspect]
     Active Substance: COBIMETINIB
     Indication: Intestinal metastasis
  3. COTELLIC [Suspect]
     Active Substance: COBIMETINIB
     Indication: Metastases to rectum

REACTIONS (3)
  - Neoplasm malignant [Unknown]
  - Diabetes mellitus [Unknown]
  - Off label use [Unknown]
